FAERS Safety Report 8565506-2 (Version None)
Quarter: 2012Q3

REPORT INFORMATION
  Report Type: 
  Country: None (occurrence: None)
  Receive Date: 20120724
  Receipt Date: 20120716
  Transmission Date: 20120928
  Serious: Yes (Life-Threatening)
  Sender: FDA-Public Use
  Company Number: 2012AT000406

PATIENT

DRUGS (4)
  1. NANDROLONE DECANOATE [Suspect]
     Indication: PRODUCT USED FOR UNKNOWN INDICATION
  2. COCAINE [Concomitant]
  3. TESTOSTERONE [Suspect]
     Indication: PRODUCT USED FOR UNKNOWN INDICATION
  4. AMPHETAMINE AND DEXTROAMPHETAMINE SALTS [Concomitant]

REACTIONS (10)
  - SPINAL COLUMN INJURY [None]
  - RENAL FAILURE ACUTE [None]
  - DIALYSIS [None]
  - RHABDOMYOLYSIS [None]
  - MULTIPLE INJURIES [None]
  - CHEST INJURY [None]
  - ABDOMINAL INJURY [None]
  - LIMB INJURY [None]
  - ROAD TRAFFIC ACCIDENT [None]
  - RESPIRATORY DISORDER [None]
